FAERS Safety Report 10803985 (Version 2)
Quarter: 2015Q1

REPORT INFORMATION
  Report Type: Spontaneous
  Country: US (occurrence: US)
  Receive Date: 20150217
  Receipt Date: 20150315
  Transmission Date: 20150721
  Serious: No
  Sender: FDA-Public Use
  Company Number: US-TEVA-539090USA

PATIENT
  Sex: Male

DRUGS (1)
  1. PROAIR HFA [Suspect]
     Active Substance: ALBUTEROL SULFATE
     Indication: ASTHMA
     Route: 048

REACTIONS (5)
  - Muscle spasms [Unknown]
  - Presyncope [Unknown]
  - Drug ineffective [Unknown]
  - Device malfunction [Unknown]
  - Product substitution issue [Unknown]
